FAERS Safety Report 4836187-6 (Version None)
Quarter: 2005Q4

REPORT INFORMATION
  Report Type: 
  Country: None (occurrence: None)
  Receive Date: 20051121
  Receipt Date: 20051121
  Transmission Date: 20060501
  Serious: Yes (Life-Threatening, Hospitalization)
  Sender: FDA-Public Use
  Company Number: None

PATIENT
  Sex: Female
  Weight: 64 kg

DRUGS (3)
  1. FLUDARABINE [Suspect]
     Indication: ACUTE LYMPHOCYTIC LEUKAEMIA
     Dosage: 43 MG   DAILY   IV DRIP
     Route: 041
     Dates: start: 20050923, end: 20050926
  2. BUSULFAN [Suspect]
     Dosage: 225 MG   DAILY   IV DRIP
     Route: 041
     Dates: start: 20050924, end: 20050927
  3. CAMPATH [Concomitant]

REACTIONS (5)
  - ANTIBODY TEST POSITIVE [None]
  - EPISTAXIS [None]
  - REFRACTORINESS TO PLATELET TRANSFUSION [None]
  - THERAPEUTIC RESPONSE DECREASED [None]
  - THROMBOCYTOPENIA [None]
